FAERS Safety Report 9656737 (Version 1)
Quarter: 2013Q4

REPORT INFORMATION
  Report Type: Spontaneous
  Country: FR (occurrence: None)
  Receive Date: 20131018
  Receipt Date: 20131018
  Transmission Date: 20140711
  Serious: Yes (Hospitalization)
  Sender: FDA-Public Use
  Company Number: 2013038325

PATIENT
  Age: 28 Year
  Sex: Female

DRUGS (2)
  1. PRIVIGEN (IMMUNE GLOBULIN INTRAVENOUS (HUMAN) 10% LIQUID) [Suspect]
     Dosage: 80 G QD, NI, NI, INTRAVENOUS (NOT OTHERWISE SPECIFIED)
     Route: 042
     Dates: start: 20130828, end: 20130829
  2. CORTICOSTERODIS (CORTICOSTEROIDS) [Concomitant]

REACTIONS (11)
  - Meningitis aseptic [None]
  - Haemolytic anaemia [None]
  - Nausea [None]
  - Vomiting [None]
  - Pyrexia [None]
  - Headache [None]
  - Platelet count increased [None]
  - Urinary tract infection [None]
  - Phonophobia [None]
  - Photophobia [None]
  - Pain [None]
